FAERS Safety Report 6889056-4 (Version None)
Quarter: 2010Q3

REPORT INFORMATION
  Report Type: 
  Country: None (occurrence: None)
  Receive Date: 20100730
  Receipt Date: 20071206
  Transmission Date: 20110219
  Serious: No
  Sender: FDA-Public Use
  Company Number: US-PFIZER INC-2007102979

PATIENT
  Weight: 52.272 kg

DRUGS (4)
  1. LIPITOR [Suspect]
     Indication: BLOOD CHOLESTEROL INCREASED
     Dates: start: 20020101
  2. COPAXONE [Concomitant]
     Indication: MULTIPLE SCLEROSIS
  3. SYNTHROID [Concomitant]
  4. ACTONEL [Concomitant]
     Indication: OSTEOPOROSIS

REACTIONS (2)
  - MUSCULAR WEAKNESS [None]
  - MYALGIA [None]
